FAERS Safety Report 13579746 (Version 1)
Quarter: 2017Q2

REPORT INFORMATION
  Report Type: Spontaneous
  Country: US (occurrence: US)
  Receive Date: 20170525
  Receipt Date: 20170525
  Transmission Date: 20170830
  Serious: Yes (Hospitalization, Other)
  Sender: FDA-Public Use
  Company Number: US-CLINIGEN GROUP PLC/ CLINIGEN HEALTHCARE LTD-E2B_00005037

PATIENT
  Age: 26 Year
  Sex: Female
  Weight: 35.5 kg

DRUGS (2)
  1. FOSCAVIR [Suspect]
     Active Substance: FOSCARNET SODIUM
     Dosage: DOSE: 2000 MG TOTAL DAILY DOSE: 2000 MG
     Route: 042
  2. FOSCAVIR [Suspect]
     Active Substance: FOSCARNET SODIUM
     Indication: CYTOMEGALOVIRUS CHORIORETINITIS
     Dosage: DOSE: 13000 MG TOTAL DAILY DOSE: 13000 MG
     Route: 042
     Dates: start: 19950329, end: 19950329

REACTIONS (6)
  - Hypomagnesaemia [Recovered/Resolved]
  - Respiratory disorder [Recovered/Resolved]
  - Overdose [Recovered/Resolved]
  - Hypokalaemia [Recovered/Resolved]
  - Paraesthesia [Recovered/Resolved]
  - Hypophosphataemia [Recovered/Resolved]

NARRATIVE: CASE EVENT DATE: 19950329
